FAERS Safety Report 22531981 (Version 1)
Quarter: 2023Q2

REPORT INFORMATION
  Report Type: Spontaneous
  Country: US (occurrence: None)
  Receive Date: 20230606
  Receipt Date: 20230606
  Transmission Date: 20230722
  Serious: Yes (Other)
  Sender: FDA-Public Use
  Company Number: None

PATIENT
  Age: 62 Year
  Sex: Female

DRUGS (12)
  1. HUMIRA [Suspect]
     Active Substance: ADALIMUMAB
     Indication: Rheumatoid arthritis
     Dosage: OTHER QUANTITY : 40MG/0.4ML;?FREQUENCY : EVERY OTHER WEEK;?
     Route: 058
     Dates: start: 20220113
  2. HUMIRA [Suspect]
     Active Substance: ADALIMUMAB
     Dosage: FREQUENCY : EVERY OTHER WEEK;?
     Route: 058
  3. CALCIUM CIT [Concomitant]
  4. GABAPENTIN [Concomitant]
  5. MULTIVITAMIN  TAB WOMENS [Concomitant]
  6. NABUMETONE [Concomitant]
  7. PEPCID AC [Concomitant]
     Active Substance: FAMOTIDINE
  8. PROTONIX [Concomitant]
  9. SUCRALFATE [Concomitant]
     Active Substance: SUCRALFATE
  10. TRAMADOL HCL [Concomitant]
     Active Substance: TRAMADOL HYDROCHLORIDE
  11. VITAMIN B12 [Concomitant]
     Active Substance: CYANOCOBALAMIN
  12. VITAMIN D3 [Concomitant]
     Active Substance: CHOLECALCIFEROL

REACTIONS (2)
  - Nerve injury [None]
  - Neuralgia [None]

NARRATIVE: CASE EVENT DATE: 20230401
